FAERS Safety Report 6659891-6 (Version None)
Quarter: 2010Q1

REPORT INFORMATION
  Report Type: 
  Country: None (occurrence: None)
  Receive Date: 20100330
  Receipt Date: 20100330
  Transmission Date: 20100710
  Serious: No
  Sender: FDA-Public Use
  Company Number: None

PATIENT
  Age: 55 Year
  Sex: Male
  Weight: 92.0802 kg

DRUGS (1)
  1. CIPROFLOXACIN [Suspect]
     Indication: PROSTATOMEGALY
     Dosage: 1 12HOURS PO
     Route: 048
     Dates: start: 20100303, end: 20100305

REACTIONS (3)
  - ABASIA [None]
  - PAIN [None]
  - TENDONITIS [None]
